FAERS Safety Report 4283724-9 (Version None)
Quarter: 2004Q1

REPORT INFORMATION
  Report Type: 
  Country: None (occurrence: None)
  Receive Date: 20040115
  Receipt Date: 20030604
  Transmission Date: 20041129
  Serious: Yes (Other)
  Sender: FDA-Public Use
  Company Number: NSADSS2003003805

PATIENT
  Age: 68 Year
  Sex: Female
  Weight: 58.0604 kg

DRUGS (6)
  1. DOXIL [Suspect]
     Indication: MULTIPLE MYELOMA
     Dosage: 50 MG/M2, INTRAVENOUS DRIP
     Route: 041
     Dates: start: 20021101, end: 20030115
  2. AREDIA [Concomitant]
  3. THALIDOMIDE (THALIDOMIDE) [Concomitant]
  4. CYTOXAN [Concomitant]
  5. DECADRON [Concomitant]
  6. ANZEMET (DOLASETRON MESILATE) [Concomitant]

REACTIONS (3)
  - CONDITION AGGRAVATED [None]
  - ERYTHEMA [None]
  - OEDEMA PERIPHERAL [None]
